FAERS Safety Report 13153897 (Version 1)
Quarter: 2017Q1

REPORT INFORMATION
  Report Type: Spontaneous
  Country: CH (occurrence: CH)
  Receive Date: 20170126
  Receipt Date: 20170126
  Transmission Date: 20170428
  Serious: Yes (Hospitalization)
  Sender: FDA-Public Use
  Company Number: CH-ALK-ABELLO A/S-1062383

PATIENT
  Sex: Male

DRUGS (1)
  1. GRASTEK [Suspect]
     Active Substance: PHLEUM PRATENSE POLLEN
     Dates: start: 20161110

REACTIONS (2)
  - Laryngospasm [Recovered/Resolved]
  - Drug-disease interaction [Recovered/Resolved]
